FAERS Safety Report 4330548-X (Version None)
Quarter: 2004Q2

REPORT INFORMATION
  Report Type: 
  Country: None (occurrence: None)
  Receive Date: 20040401
  Receipt Date: 20040401
  Transmission Date: 20050107
  Serious: Yes (Other)
  Sender: FDA-Public Use
  Company Number: None

PATIENT
  Age: 77 Year
  Sex: Male
  Weight: 69.4 kg

DRUGS (11)
  1. WARFARIN SODIUM [Suspect]
     Indication: ATRIAL FIBRILLATION
     Dosage: VARIOUS, 4MG QD, , ORAL
     Route: 048
  2. PHENYTOIN NA [Concomitant]
  3. GLYBURIDE [Concomitant]
  4. TERAZOSIN HCL [Concomitant]
  5. CELECOXIB [Concomitant]
  6. CARBAMIDE PEROXIDE [Concomitant]
  7. SIMVASTATIN [Concomitant]
  8. BRIMONIDINE TARTRATE [Concomitant]
  9. LATANOPROST [Concomitant]
  10. LEVOBUNOLOL HCL [Concomitant]
  11. PSYLLIUM [Concomitant]

REACTIONS (1)
  - INTERNATIONAL NORMALISED RATIO INCREASED [None]
